FAERS Safety Report 18974013 (Version 1)
Quarter: 2021Q1

REPORT INFORMATION
  Report Type: Spontaneous
  Country: US (occurrence: US)
  Receive Date: 20210305
  Receipt Date: 20210305
  Transmission Date: 20210420
  Serious: Yes (Other)
  Sender: FDA-Public Use
  Company Number: US-IPSEN BIOPHARMACEUTICALS, INC.-2021-05193

PATIENT
  Age: 29 Year
  Sex: Female

DRUGS (3)
  1. DYSPORT [Suspect]
     Active Substance: ABOBOTULINUMTOXINA
     Indication: SKIN WRINKLING
  2. DYSPORT [Suspect]
     Active Substance: ABOBOTULINUMTOXINA
     Indication: SKIN WRINKLING
     Dosage: 66 IU(GLABELLA 48 IU,4 INJECTION POINT: 12 IU EACH, FRONTALIS 18 IU, 3 INJECTION POINT OF 6 IU EACH)
     Route: 065
     Dates: start: 20210222, end: 20210222
  3. DYSPORT [Suspect]
     Active Substance: ABOBOTULINUMTOXINA
     Indication: OFF LABEL USE

REACTIONS (9)
  - Suspected COVID-19 [Unknown]
  - Dry mouth [Not Recovered/Not Resolved]
  - Throat tightness [Recovered/Resolved]
  - Prescribed overdose [Unknown]
  - Dizziness [Recovered/Resolved]
  - Influenza like illness [Not Recovered/Not Resolved]
  - Off label use [Unknown]
  - Product preparation error [Unknown]
  - Chest discomfort [Not Recovered/Not Resolved]

NARRATIVE: CASE EVENT DATE: 202102
